FAERS Safety Report 24607382 (Version 3)
Quarter: 2024Q4

REPORT INFORMATION
  Report Type: Spontaneous
  Country: US (occurrence: US)
  Receive Date: 20241112
  Receipt Date: 20241118
  Transmission Date: 20250115
  Serious: No
  Sender: Haleon PLC
  Company Number: US-HALEON-2208250

PATIENT
  Age: 18 Year
  Sex: Female

DRUGS (1)
  1. SENSODYNE FRESH MINT [Suspect]
     Active Substance: POTASSIUM NITRATE\SODIUM FLUORIDE
     Indication: Product used for unknown indication
     Dosage: EXPIRATION DATE IS 4/25

REACTIONS (4)
  - Hyperaesthesia teeth [Unknown]
  - Condition aggravated [Unknown]
  - Product complaint [Unknown]
  - Suspected counterfeit product [Unknown]
